FAERS Safety Report 23659753 (Version 1)
Quarter: 2024Q1

REPORT INFORMATION
  Report Type: Spontaneous
  Country: DE (occurrence: DE)
  Receive Date: 20240321
  Receipt Date: 20240321
  Transmission Date: 20240409
  Serious: Yes (Death, Other)
  Sender: FDA-Public Use
  Company Number: DE-GLAXOSMITHKLINE-DE2024GSK029469

PATIENT
  Age: 61 Year
  Sex: Male

DRUGS (5)
  1. BUPRENORPHINE [Suspect]
     Active Substance: BUPRENORPHINE
     Indication: Product used for unknown indication
     Dosage: UNK
     Route: 065
  2. COCAINE [Suspect]
     Active Substance: COCAINE
     Indication: Product used for unknown indication
     Dosage: UNK
     Route: 065
  3. METHADONE [Suspect]
     Active Substance: METHADONE HYDROCHLORIDE
     Indication: Product used for unknown indication
     Dosage: UNK
     Route: 065
  4. AMPHETAMINE [Suspect]
     Active Substance: AMPHETAMINE
     Indication: Product used for unknown indication
     Dosage: UNK
     Route: 065
  5. HEROIN [Suspect]
     Active Substance: DIAMORPHINE
     Indication: Product used for unknown indication
     Dosage: UNK
     Route: 065

REACTIONS (23)
  - Pulmonary oedema [Fatal]
  - Brain oedema [Fatal]
  - Suicide attempt [Fatal]
  - Arterial injury [Fatal]
  - Venous injury [Fatal]
  - Shock haemorrhagic [Fatal]
  - Drug abuse [Fatal]
  - Tendon rupture [Fatal]
  - Pallor [Fatal]
  - Bladder dilatation [Fatal]
  - Haemorrhage [Fatal]
  - Toxicity to various agents [Fatal]
  - Joint injury [Fatal]
  - Intentional self-injury [Unknown]
  - Incision site haemorrhage [Unknown]
  - Muscle injury [Unknown]
  - Human bite [Unknown]
  - Skin haemorrhage [Unknown]
  - Epistaxis [Unknown]
  - Face injury [Unknown]
  - Soft tissue injury [Unknown]
  - Mouth haemorrhage [Unknown]
  - Bite [Unknown]
